FAERS Safety Report 12538233 (Version 4)
Quarter: 2016Q4

REPORT INFORMATION
  Report Type: Report from Study
  Country: DE (occurrence: DE)
  Receive Date: 20160707
  Receipt Date: 20161121
  Transmission Date: 20170207
  Serious: Yes (Other)
  Sender: FDA-Public Use
  Company Number: DE-VERTEX PHARMACEUTICALS-2016-004125

PATIENT
  Age: 21 Year
  Sex: Male
  Weight: 62 kg

DRUGS (18)
  1. VOLTAREN [Concomitant]
     Active Substance: DICLOFENAC SODIUM
     Indication: OSTEOARTHRITIS
     Dosage: 75 MG, TWO DAYS
     Route: 048
     Dates: start: 20140101
  2. LANTUS [Concomitant]
     Active Substance: INSULIN GLARGINE
     Indication: DIABETES MELLITUS
     Dosage: 5 IU, 5 TIMES PER DAY
     Route: 058
     Dates: start: 20160101
  3. COLISTIN [Concomitant]
     Active Substance: COLISTIN
     Indication: CONJUNCTIVITIS ALLERGIC
     Dosage: 10 MG, QD
     Dates: start: 2010
  4. URSOFALK [Concomitant]
     Active Substance: URSODIOL
     Indication: PANCREATIC INSUFFICIENCY
     Dosage: 500 MG, BID
     Route: 048
     Dates: start: 20160101
  5. VITAMIN D [Concomitant]
     Active Substance: CHOLECALCIFEROL
     Indication: VITAMIN D DEFICIENCY
     Dosage: 1000 IU, BID
     Route: 048
     Dates: start: 20100101
  6. VX-770 [Suspect]
     Active Substance: IVACAFTOR
     Indication: CYSTIC FIBROSIS
     Dosage: UNK, BID
     Route: 048
     Dates: start: 20160504, end: 20160624
  7. CETIRIZINE [Concomitant]
     Active Substance: CETIRIZINE HYDROCHLORIDE
     Indication: CONJUNCTIVITIS
     Dosage: 10 MG, QD
     Route: 048
     Dates: start: 20160101
  8. VIANI FORTE [Concomitant]
     Active Substance: FLUTICASONE PROPIONATE\SALMETEROL XINAFOATE
     Indication: BRONCHOSPASM
     Dosage: 50 ?G, BID
     Route: 055
     Dates: start: 20160101
  9. VITAMIN A [Concomitant]
     Active Substance: VITAMIN A
     Indication: VITAMIN A DEFICIENCY
     Dosage: 10000 IU, BID
     Route: 048
     Dates: start: 20100101
  10. MUCOCLEAR [Concomitant]
     Dosage: 5 ML, BID
     Route: 055
     Dates: start: 20150101
  11. ACC [Concomitant]
     Active Substance: ACETYLCYSTEINE
     Dosage: 200 MG, TID
     Route: 048
     Dates: start: 20160101
  12. PULMOZYME [Concomitant]
     Active Substance: DORNASE ALFA
     Indication: BRONCHOSPASM
     Dosage: 2.5 MG, BID
     Route: 055
     Dates: start: 20150101
  13. SALBUTAMOL [Concomitant]
     Active Substance: ALBUTEROL
     Indication: BRONCHOSPASM
     Dosage: 8 DROPS, QD
     Route: 055
     Dates: start: 20150101
  14. DESLORATADINE. [Concomitant]
     Active Substance: DESLORATADINE
     Indication: CONJUNCTIVITIS
     Dosage: 5 MG, QD
     Route: 048
     Dates: start: 20160501
  15. DESLORATADIN [Concomitant]
     Active Substance: DESLORATADINE
     Indication: HYPERSENSITIVITY
     Dosage: 5 MG, UNK
     Dates: start: 201605
  16. VITAMIN K [Concomitant]
     Active Substance: PHYTONADIONE
     Indication: VITAMIN K DEFICIENCY
     Dosage: 10 DROPS,  QW
     Route: 048
     Dates: start: 20100101
  17. NASONEX [Concomitant]
     Active Substance: MOMETASONE FUROATE
     Indication: CONJUNCTIVITIS
     Dosage: 50 ?G, PRN
     Route: 055
     Dates: start: 20100101
  18. CREON [Concomitant]
     Active Substance: PANCRELIPASE AMYLASE\PANCRELIPASE LIPASE\PANCRELIPASE PROTEASE
     Indication: PANCREATIC INSUFFICIENCY
     Dosage: UNK
     Route: 048
     Dates: start: 20120101

REACTIONS (1)
  - Blood creatine phosphokinase increased [Recovered/Resolved]

NARRATIVE: CASE EVENT DATE: 20160629
